FAERS Safety Report 12225499 (Version 1)
Quarter: 2016Q1

REPORT INFORMATION
  Report Type: Spontaneous
  Country: US (occurrence: None)
  Receive Date: 20160330
  Receipt Date: 20160330
  Transmission Date: 20160526
  Serious: No
  Sender: FDA-Public Use
  Company Number: None

PATIENT
  Age: 55 Year
  Sex: Female
  Weight: 65.77 kg

DRUGS (2)
  1. CAPECITABINE 500 MG TABLETS TEVA [Suspect]
     Active Substance: CAPECITABINE
     Indication: OVARIAN CANCER
     Dosage: 1500 MG EVERY MORNING PO
     Route: 048
     Dates: start: 20150611, end: 20160314
  2. CAPECITABINE 500 MG TABLETS TEVA [Suspect]
     Active Substance: CAPECITABINE
     Indication: OVARIAN CANCER
     Dosage: 1000 MG EVERY MORNING PO
     Route: 048
     Dates: start: 20150611, end: 20160314

REACTIONS (5)
  - Neoplasm progression [None]
  - Nausea [None]
  - Fatigue [None]
  - Drug ineffective [None]
  - Therapy cessation [None]

NARRATIVE: CASE EVENT DATE: 20160314
